FAERS Safety Report 4647637-2 (Version None)
Quarter: 2005Q2

REPORT INFORMATION
  Report Type: 
  Country: None (occurrence: None)
  Receive Date: 20050426
  Receipt Date: 20050413
  Transmission Date: 20051028
  Serious: No
  Sender: FDA-Public Use
  Company Number: 2004UW24476

PATIENT
  Age: 80 Year
  Sex: Female
  Weight: 64.4108 kg

DRUGS (9)
  1. ATACAND [Suspect]
     Indication: HYPERTENSION
     Dates: start: 20040901, end: 20041015
  2. ARIMIDEX [Suspect]
     Indication: BREAST CANCER
     Dosage: 1 MG QD PO
     Route: 048
     Dates: start: 20030916, end: 20041015
  3. Z-PAK [Suspect]
     Indication: BRONCHITIS
     Dates: start: 20040919
  4. TYLENOL (CAPLET) [Suspect]
     Indication: ARTHRALGIA
  5. COREG [Suspect]
     Indication: CARDIAC FAILURE CONGESTIVE
     Dosage: 25 MG BID PO
     Route: 048
  6. CALCIUM GLUCONATE [Concomitant]
  7. VITAMIN E [Concomitant]
  8. GLUCOSAMINE W/CHONDROITIN [Concomitant]
  9. VITAMIN D [Concomitant]

REACTIONS (20)
  - ADVERSE DRUG REACTION [None]
  - ALANINE AMINOTRANSFERASE INCREASED [None]
  - ASPARTATE AMINOTRANSFERASE INCREASED [None]
  - AUTOIMMUNE DISORDER [None]
  - BILE DUCT STONE [None]
  - BILIARY CIRRHOSIS PRIMARY [None]
  - BLOOD ALKALINE PHOSPHATASE INCREASED [None]
  - BLOOD BILIRUBIN INCREASED [None]
  - BLOOD COPPER INCREASED [None]
  - BONE DISORDER [None]
  - CHOLESTASIS [None]
  - DRUG INTERACTION [None]
  - EXCORIATION [None]
  - GALLBLADDER DISORDER [None]
  - HEPATIC ENZYME INCREASED [None]
  - HEPATIC FIBROSIS [None]
  - JAUNDICE [None]
  - MUSCULOSKELETAL DISCOMFORT [None]
  - PRURITUS [None]
  - SLEEP DISORDER [None]
